FAERS Safety Report 14226327 (Version 1)
Quarter: 2017Q4

REPORT INFORMATION
  Report Type: Spontaneous
  Country: RU (occurrence: RU)
  Receive Date: 20171127
  Receipt Date: 20171127
  Transmission Date: 20180321
  Serious: Yes (Other)
  Sender: FDA-Public Use
  Company Number: RU-BAYER-2017-224490

PATIENT
  Age: 47 Year
  Sex: Female

DRUGS (2)
  1. MIRENA [Suspect]
     Active Substance: LEVONORGESTREL
     Dosage: 20 MCG/24HR, CONT
     Route: 015
  2. ESTRADIOL HEMIHYDRATE (PATCH) [Suspect]
     Active Substance: ESTRADIOL HEMIHYDRATE

REACTIONS (17)
  - Feeling hot [None]
  - Tachycardia [None]
  - Hypomenorrhoea [Recovered/Resolved]
  - Headache [None]
  - Cardiovascular insufficiency [None]
  - Adenomyosis [None]
  - Amenorrhoea [Recovered/Resolved]
  - Hypercoagulation [None]
  - Hyperlipidaemia [None]
  - Oedema peripheral [None]
  - Hyperhidrosis [None]
  - Peripheral swelling [None]
  - Dyspnoea [None]
  - Fatigue [None]
  - Menopausal symptoms [Recovered/Resolved]
  - Palpitations [None]
  - Hypertension [None]
